FAERS Safety Report 9300410 (Version 1)
Quarter: 2012Q4

REPORT INFORMATION
  Report Type: Spontaneous
  Country: US (occurrence: None)
  Receive Date: 20121109
  Receipt Date: 20121109
  Transmission Date: 20130627
  Serious: Yes (Other)
  Sender: FDA-Public Use
  Company Number: 2011S1000778

PATIENT
  Age: 57 Year
  Sex: Male

DRUGS (1)
  1. CUBICIN [Suspect]
     Indication: METHICILLIN-RESISTANT STAPHYLOCOCCAL AUREUS INFECTION

REACTIONS (4)
  - Blood creatinine increased [None]
  - Anuria [None]
  - Decreased appetite [None]
  - Vomiting [None]
